FAERS Safety Report 18674478 (Version 1)
Quarter: 2020Q4

REPORT INFORMATION
  Report Type: Spontaneous
  Country: US (occurrence: US)
  Receive Date: 20201228
  Receipt Date: 20201228
  Transmission Date: 20210114
  Serious: Yes (Other)
  Sender: FDA-Public Use
  Company Number: None

PATIENT
  Age: 70 Year
  Weight: 112.5 kg

DRUGS (1)
  1. BAMLANIVIMAB. [Suspect]
     Active Substance: BAMLANIVIMAB
     Indication: COVID-19
     Dates: start: 20201226, end: 20201226

REACTIONS (4)
  - Dry mouth [None]
  - Flushing [None]
  - Cough [None]
  - Stomatitis [None]

NARRATIVE: CASE EVENT DATE: 20201226
